FAERS Safety Report 14391454 (Version 4)
Quarter: 2018Q2

REPORT INFORMATION
  Report Type: Spontaneous
  Country: US (occurrence: US)
  Receive Date: 20180116
  Receipt Date: 20180403
  Transmission Date: 20180711
  Serious: No
  Sender: FDA-Public Use
  Company Number: US-009507513-1801USA002188

PATIENT
  Age: 17 Year
  Sex: Female
  Weight: 82.09 kg

DRUGS (2)
  1. NEXPLANON [Suspect]
     Active Substance: ETONOGESTREL
     Indication: CONTRACEPTION
     Dosage: 68 MG/1 ROD PER 3 YEARS
     Route: 059
     Dates: start: 20171220, end: 20171220
  2. NEXPLANON [Suspect]
     Active Substance: ETONOGESTREL
     Dosage: 68 MG/1 ROD PER 3 YEARS
     Route: 059
     Dates: start: 20171220

REACTIONS (6)
  - Complication of device insertion [Recovered/Resolved]
  - Device deployment issue [Recovered/Resolved]
  - Device dislocation [Recovered/Resolved]
  - Device difficult to use [Recovered/Resolved]
  - No adverse event [Unknown]
  - Product quality issue [Recovered/Resolved]

NARRATIVE: CASE EVENT DATE: 20171220
